FAERS Safety Report 4549788-X (Version None)
Quarter: 2005Q1

REPORT INFORMATION
  Report Type: 
  Country: None (occurrence: None)
  Receive Date: 20050111
  Receipt Date: 20041109
  Transmission Date: 20050727
  Serious: Yes (Life-Threatening, Hospitalization, Disabling, Other)
  Sender: FDA-Public Use
  Company Number: US-MERCK-0411USA01583

PATIENT
  Age: 66 Year
  Sex: Male
  Weight: 58 kg

DRUGS (10)
  1. VIOXX [Suspect]
     Indication: ARTHRITIS
     Route: 048
     Dates: start: 20030820
  2. VIOXX [Suspect]
     Indication: CHEST DISCOMFORT
     Route: 048
     Dates: start: 20030820
  3. ALBUTEROL [Concomitant]
     Route: 065
  4. ATROVENT [Concomitant]
     Route: 065
  5. PREDNISONE [Concomitant]
     Route: 065
  6. COUMADIN [Concomitant]
     Route: 065
  7. CAPTOPRIL [Concomitant]
     Route: 065
  8. DUONEB [Concomitant]
     Route: 065
  9. RESTORIL [Concomitant]
     Route: 065
  10. OXYGEN [Concomitant]
     Route: 065

REACTIONS (5)
  - ANXIETY [None]
  - ATRIAL FIBRILLATION [None]
  - CARDIAC FAILURE CONGESTIVE [None]
  - CHRONIC OBSTRUCTIVE PULMONARY DISEASE [None]
  - DYSPNOEA [None]
